FAERS Safety Report 5914855-2 (Version None)
Quarter: 2008Q4

REPORT INFORMATION
  Report Type: 
  Country: None (occurrence: None)
  Receive Date: 20081010
  Receipt Date: 20081001
  Transmission Date: 20090506
  Serious: Yes (Other)
  Sender: FDA-Public Use
  Company Number: PHHY2008DE19999

PATIENT
  Sex: Male

DRUGS (5)
  1. LEPONEX [Suspect]
     Indication: SCHIZOPHRENIA
     Dosage: 550 MG
     Route: 048
     Dates: start: 20000101
  2. LEPONEX [Suspect]
     Dosage: UPTO 250 MG/DAY
     Route: 048
     Dates: start: 20080301
  3. SIMVASTATIN [Concomitant]
     Indication: HYPERLIPIDAEMIA
     Dosage: 20 MG/DAY
     Route: 048
  4. ZOPICLON [Concomitant]
     Indication: SLEEP DISORDER
     Dosage: 7.5 MG/DAY
     Route: 048
  5. PANTOZOL [Concomitant]
     Indication: GASTRIC DISORDER
     Dosage: 40 MG/DAY
     Route: 048

REACTIONS (3)
  - EMPYEMA [None]
  - INFECTION [None]
  - PLEURAL EFFUSION [None]
